FAERS Safety Report 8604274-2 (Version None)
Quarter: 2012Q3

REPORT INFORMATION
  Report Type: 
  Country: None (occurrence: None)
  Receive Date: 20120807
  Receipt Date: 20120727
  Transmission Date: 20120928
  Serious: Yes (Other)
  Sender: FDA-Public Use
  Company Number: PD 165

PATIENT

DRUGS (2)
  1. LEVETIRACETAM [Suspect]
     Indication: EPILEPSY
     Dosage: 250-1000MG/DAY/IV
     Route: 042
  2. LEVETIRACETAM [Suspect]
     Dosage: ORAL
     Route: 048

REACTIONS (1)
  - DELIRIUM [None]
